FAERS Safety Report 8894714 (Version 2)
Quarter: 2012Q4

REPORT INFORMATION
  Report Type: 
  Country: US (occurrence: US)
  Receive Date: 20121108
  Receipt Date: 20121115
  Transmission Date: 20130627
  Serious: No
  Sender: FDA-Public Use
  Company Number: US-B.I. PHARMACEUTICALS,INC./RIDGEFIELD-2012-BP-27292BP

PATIENT
  Sex: Female
  Weight: 65 kg

DRUGS (7)
  1. SPIRIVA [Suspect]
     Indication: ASTHMA
     Dosage: 18 mcg
     Route: 055
     Dates: start: 2011
  2. BROVANA [Concomitant]
     Route: 055
  3. PULMICORT [Concomitant]
     Route: 055
  4. ALBUTEROL [Concomitant]
     Route: 055
  5. ZYFLO CR [Concomitant]
  6. PREDNISONE [Concomitant]
     Route: 048
  7. INTRAVENOUS IMMUNOGLOBULIN [Concomitant]
     Route: 042

REACTIONS (5)
  - Dyspnoea [Not Recovered/Not Resolved]
  - Pulmonary congestion [Not Recovered/Not Resolved]
  - Productive cough [Not Recovered/Not Resolved]
  - Product quality issue [Recovered/Resolved]
  - Product quality issue [Recovered/Resolved]
